FAERS Safety Report 25586734 (Version 1)
Quarter: 2025Q3

REPORT INFORMATION
  Report Type: Report from Study
  Country: US (occurrence: US)
  Receive Date: 20250721
  Receipt Date: 20250721
  Transmission Date: 20251021
  Serious: Yes (Other)
  Sender: PFIZER
  Company Number: US-PFIZER INC-202500145743

PATIENT
  Age: 69 Year
  Sex: Female

DRUGS (17)
  1. BRAFTOVI [Suspect]
     Active Substance: ENCORAFENIB
     Indication: Malignant melanoma
     Dosage: 300 MG BY MOUTH ONCE DAILY
     Route: 048
     Dates: start: 202507
  2. BRAFTOVI [Suspect]
     Active Substance: ENCORAFENIB
     Dosage: 1 CAPSULE DAILY FOR BRAFTOVI
     Dates: start: 202507, end: 20250714
  3. MEKTOVI [Suspect]
     Active Substance: BINIMETINIB
     Indication: Malignant melanoma
     Dosage: 45 MG BY MOUTH TWICE DAILY
     Route: 048
     Dates: start: 202507
  4. MEKTOVI [Suspect]
     Active Substance: BINIMETINIB
     Dosage: 1 TABLET BID (TWICE A DAY) FOR MEKTOVI
     Dates: start: 202507, end: 20250714
  5. ALBUTEROL SULFATE [Concomitant]
     Active Substance: ALBUTEROL SULFATE
  6. CETIRIZINE HYDROCHLORIDE [Concomitant]
     Active Substance: CETIRIZINE HYDROCHLORIDE
     Indication: Hypersensitivity
  7. BREO ELLIPTA [Concomitant]
     Active Substance: FLUTICASONE FUROATE\VILANTEROL TRIFENATATE
  8. CETIRIZINE HCL [Concomitant]
     Active Substance: CETIRIZINE HYDROCHLORIDE
  9. DILTIAZEM [Concomitant]
     Active Substance: DILTIAZEM
     Route: 048
  10. FAMOTIDINE [Concomitant]
     Active Substance: FAMOTIDINE
  11. FLONASE ALLERGY RELIEF [Concomitant]
     Active Substance: FLUTICASONE PROPIONATE
     Indication: Hypersensitivity
  12. GABAPENTIN [Concomitant]
     Active Substance: GABAPENTIN
  13. HYDROCHLOROTHIAZIDE [Concomitant]
     Active Substance: HYDROCHLOROTHIAZIDE
  14. LISINOPRIL [Concomitant]
     Active Substance: LISINOPRIL
  15. OMEPRAZOLE [Concomitant]
     Active Substance: OMEPRAZOLE
  16. XARELTO [Concomitant]
     Active Substance: RIVAROXABAN
  17. VITAMINS [Concomitant]
     Active Substance: VITAMINS

REACTIONS (4)
  - Hallucination [Recovering/Resolving]
  - Headache [Recovering/Resolving]
  - Fall [Recovering/Resolving]
  - Off label use [Unknown]

NARRATIVE: CASE EVENT DATE: 20250701
